FAERS Safety Report 5276360-9 (Version None)
Quarter: 2007Q1

REPORT INFORMATION
  Report Type: 
  Country: None (occurrence: None)
  Receive Date: 20070326
  Receipt Date: 20060815
  Transmission Date: 20070707
  Serious: Yes (Other)
  Sender: FDA-Public Use
  Company Number: US-PFIZER INC-2007022320

PATIENT

DRUGS (1)
  1. GEODON [Suspect]
     Dosage: DAILY DOSE:120MG

REACTIONS (1)
  - PLEUROTHOTONUS [None]
